FAERS Safety Report 26057765 (Version 1)
Quarter: 2025Q4

REPORT INFORMATION
  Report Type: Spontaneous
  Country: US (occurrence: US)
  Receive Date: 20251118
  Receipt Date: 20251118
  Transmission Date: 20260118
  Serious: No
  Sender: TOLMAR
  Company Number: US-Tolmar-TLM-2025-07795

PATIENT

DRUGS (2)
  1. ELIGARD [Suspect]
     Active Substance: LEUPROLIDE ACETATE
     Indication: Prostate cancer
     Dosage: EXPIRATION DATES: DEC-2026; NOV-2026; 30-NOV-2026 ?DOSE NOT ADMINISTERED?SERIAL: 1573406286848.?GTIN
  2. DEVICE [Suspect]
     Active Substance: DEVICE
     Indication: Prostate cancer
     Dosage: EXPIRATION DATES: DEC-2026; NOV-2026; 30-NOV-2026 ?DOSE NOT ADMINISTERED?SERIAL: 1573406286848.?GTIN

REACTIONS (2)
  - Intercepted product preparation error [Unknown]
  - Device leakage [Unknown]
